FAERS Safety Report 12821019 (Version 1)
Quarter: 2016Q4

REPORT INFORMATION
  Report Type: Spontaneous
  Country: US (occurrence: US)
  Receive Date: 20161006
  Receipt Date: 20161006
  Transmission Date: 20170207
  Serious: No
  Sender: FDA-Public Use
  Company Number: US-PFIZER INC-2016458489

PATIENT
  Sex: Female

DRUGS (1)
  1. CALAN [Suspect]
     Active Substance: VERAPAMIL HYDROCHLORIDE
     Dosage: UNK
     Dates: start: 201603

REACTIONS (5)
  - Rash [Unknown]
  - Blood bilirubin increased [Unknown]
  - Oedema peripheral [Unknown]
  - Hepatic enzyme increased [Unknown]
  - Productive cough [Unknown]

NARRATIVE: CASE EVENT DATE: 2016
